FAERS Safety Report 9932694 (Version 1)
Quarter: 2014Q1

REPORT INFORMATION
  Report Type: Report from Study
  Country: US (occurrence: US)
  Receive Date: 20140228
  Receipt Date: 20140228
  Transmission Date: 20141002
  Serious: No
  Sender: FDA-Public Use
  Company Number: US-ABBVIE-13P-163-1061876-00

PATIENT
  Age: 56 Year
  Sex: Male
  Weight: 71.73 kg

DRUGS (3)
  1. ANDROGEL [Suspect]
     Indication: BLOOD TESTOSTERONE DECREASED
     Route: 061
     Dates: start: 2012, end: 2012
  2. ANDROGEL [Suspect]
     Dosage: 2 PUMPS DAILY, 3-4 TIMES WEEKLY
     Route: 061
     Dates: start: 2012
  3. VIAGRA [Concomitant]
     Indication: PRODUCT USED FOR UNKNOWN INDICATION

REACTIONS (4)
  - Intentional drug misuse [Not Recovered/Not Resolved]
  - Pruritus [Not Recovered/Not Resolved]
  - Weight increased [Recovered/Resolved]
  - Drug dose omission [Not Recovered/Not Resolved]
